FAERS Safety Report 10601334 (Version 6)
Quarter: 2015Q1

REPORT INFORMATION
  Report Type: Report from Study
  Country: BE (occurrence: BE)
  Receive Date: 20141124
  Receipt Date: 20150304
  Transmission Date: 20150720
  Serious: Yes (Hospitalization)
  Sender: FDA-Public Use
  Company Number: BE-ABBVIE-14P-013-1284062-00

PATIENT
  Age: 73 Year
  Sex: Male

DRUGS (26)
  1. DUODOPA [Suspect]
     Active Substance: CARBIDOPA\LEVODOPA
     Dosage: AM 4ML, CD 3.7ML/H IN 16HRS, ND 3ML/H IN 8HRS, ED 1ML
     Route: 050
     Dates: start: 20141218, end: 20150123
  2. MODURETIC 5-50 [Concomitant]
     Active Substance: AMILORIDE HYDROCHLORIDE\HYDROCHLOROTHIAZIDE
     Indication: PRODUCT USED FOR UNKNOWN INDICATION
  3. DUODOPA [Suspect]
     Active Substance: CARBIDOPA\LEVODOPA
     Indication: PARKINSON^S DISEASE
     Route: 050
     Dates: start: 20140121, end: 20140123
  4. DUODOPA [Suspect]
     Active Substance: CARBIDOPA\LEVODOPA
     Dosage: EXTRA DOSE DECREASED
     Route: 050
     Dates: end: 20140916
  5. DUODOPA [Suspect]
     Active Substance: CARBIDOPA\LEVODOPA
     Dosage: AM = 4 ML, CD = 3.3 ML/H DURING 16H, ED = 1.5 ML, ND = 2.5 ML/H
     Route: 050
     Dates: start: 20140916, end: 20141006
  6. DUODOPA [Suspect]
     Active Substance: CARBIDOPA\LEVODOPA
     Dosage: SEE NARRATIVE
     Route: 050
     Dates: start: 20150128, end: 20150128
  7. DUODOPA [Suspect]
     Active Substance: CARBIDOPA\LEVODOPA
     Dosage: AM = 4 ML, CD = 4 ML/H DURING 16H, ED = 1.5 ML, ND = 3 ML/H
     Route: 050
     Dates: start: 20141027, end: 20141118
  8. DUODOPA [Suspect]
     Active Substance: CARBIDOPA\LEVODOPA
     Dosage: AM = 4 ML (WITH UPPER LIMIT 6 ML), CD = 3.8 ML/H DURING 16H, ED
     Route: 050
     Dates: start: 20141118, end: 20141128
  9. DUODOPA [Suspect]
     Active Substance: CARBIDOPA\LEVODOPA
     Dosage: AM = 4 ML, CD = 3.9 ML/H DURING 16H, ED = 3 ML, ND = 3.3 ML/H DURING 8H
     Route: 050
     Dates: start: 20150212, end: 20150302
  10. DUODOPA [Suspect]
     Active Substance: CARBIDOPA\LEVODOPA
     Dosage: AM = 6 ML, CD = 3.9 ML/H DURING 16H, ED = 2 ML, ND = 3.3 ML/HDURING 8H
     Route: 050
     Dates: start: 20150302
  11. LEPONEX [Concomitant]
     Active Substance: CLOZAPINE
     Indication: PRODUCT USED FOR UNKNOWN INDICATION
     Dosage: 0.5 UNIT ONCE PER DAY AND 0.25 UNIT ONCE PER DAY
  12. LANTUS [Concomitant]
     Active Substance: INSULIN GLARGINE
     Indication: PRODUCT USED FOR UNKNOWN INDICATION
     Dosage: 30
  13. DUODOPA [Suspect]
     Active Substance: CARBIDOPA\LEVODOPA
     Dosage: AM DOSE=3ML, CD=2.9ML/H FOR 16HRS AND ED=1.5ML
     Route: 050
     Dates: start: 20140123, end: 20140124
  14. DUODOPA [Suspect]
     Active Substance: CARBIDOPA\LEVODOPA
     Dosage: AM = 4 ML, CD = 4 ML/H DURING 16H, ED = 1 ML, ND = 3 ML/H DURING 8H
     Route: 050
     Dates: start: 20150123, end: 20150128
  15. DUODOPA [Suspect]
     Active Substance: CARBIDOPA\LEVODOPA
     Dosage: SEE NARRATIVE
     Route: 050
     Dates: start: 20150128, end: 20150212
  16. ADALAT [Concomitant]
     Active Substance: NIFEDIPINE
     Indication: PRODUCT USED FOR UNKNOWN INDICATION
  17. MOXONIDIN [Concomitant]
     Active Substance: MOXONIDINE
     Indication: PRODUCT USED FOR UNKNOWN INDICATION
  18. NOVORAPID [Concomitant]
     Active Substance: INSULIN ASPART
     Indication: PRODUCT USED FOR UNKNOWN INDICATION
     Dosage: 10E/14E/18E
  19. DUODOPA [Suspect]
     Active Substance: CARBIDOPA\LEVODOPA
     Dosage: AM DOSE=4ML, CD=2.9ML/H FOR 16HRS, ND=2.2ML/H FOR 8HRS AND ED=1.5ML
     Route: 050
     Dates: start: 20140912
  20. DUODOPA [Suspect]
     Active Substance: CARBIDOPA\LEVODOPA
     Route: 050
     Dates: start: 20140908, end: 20140912
  21. DUODOPA [Suspect]
     Active Substance: CARBIDOPA\LEVODOPA
     Dosage: AM = 4 ML, CD = 3.6 ML/H DURING 16H, ED = 1.5 ML, ND = 2.8 ML/H
     Route: 050
     Dates: start: 20141006, end: 20141021
  22. DUODOPA [Suspect]
     Active Substance: CARBIDOPA\LEVODOPA
     Dosage: AM = 4 ML, CD = 3.6 ML/H DURING 16H, ED = 1.5 ML, ND = 2.8 ML/H
     Route: 050
     Dates: start: 20141021, end: 20141027
  23. DUODOPA [Suspect]
     Active Substance: CARBIDOPA\LEVODOPA
     Dosage: AM: 4ML; CONTIN. DOSE: 3.5ML/H FOR 16HRS; EXTRA DOSE: 1.5ML;
     Route: 050
     Dates: start: 20141128, end: 20141218
  24. PANTOPRAZOLE [Concomitant]
     Active Substance: PANTOPRAZOLE SODIUM
     Indication: PRODUCT USED FOR UNKNOWN INDICATION
  25. ZOCOR [Concomitant]
     Active Substance: SIMVASTATIN
     Indication: PRODUCT USED FOR UNKNOWN INDICATION
  26. GLUCOPHAGE [Concomitant]
     Active Substance: METFORMIN HYDROCHLORIDE
     Indication: PRODUCT USED FOR UNKNOWN INDICATION

REACTIONS (18)
  - Bedridden [Unknown]
  - Incorrect dose administered [Unknown]
  - Dysphagia [Unknown]
  - Grimacing [Unknown]
  - Hypophagia [Recovered/Resolved]
  - Weight decreased [Unknown]
  - Enteral nutrition [Recovered/Resolved]
  - Freezing phenomenon [Unknown]
  - Abnormal dreams [Unknown]
  - Drug ineffective [Unknown]
  - Hypersomnia [Unknown]
  - Gait disturbance [Recovered/Resolved]
  - Gait disturbance [Not Recovered/Not Resolved]
  - Asthenia [Unknown]
  - General physical health deterioration [Unknown]
  - Muscle rigidity [Not Recovered/Not Resolved]
  - Dyskinesia [Not Recovered/Not Resolved]
  - On and off phenomenon [Unknown]

NARRATIVE: CASE EVENT DATE: 201404
